FAERS Safety Report 16783582 (Version 1)
Quarter: 2019Q3

REPORT INFORMATION
  Report Type: Report from Study
  Country: GB (occurrence: GB)
  Receive Date: 20190907
  Receipt Date: 20190907
  Transmission Date: 20191005
  Serious: Yes (Other)
  Sender: FDA-Public Use
  Company Number: GB-AMGEN-GBRSL2019104132

PATIENT
  Age: 47 Year
  Sex: Female

DRUGS (1)
  1. SINGLE DOSE PREFILLED AUTOINJECTOR(AMGEVITA) [Suspect]
     Active Substance: ADALIMUMAB
     Indication: RHEUMATOID ARTHRITIS
     Dosage: 40 MILLIGRAM, Q2WK
     Route: 058
     Dates: start: 201904

REACTIONS (7)
  - Lower respiratory tract infection [Recovering/Resolving]
  - Blood iron decreased [Unknown]
  - Vomiting [Unknown]
  - Gastric disorder [Unknown]
  - Nausea [Unknown]
  - Pleural effusion [Unknown]
  - Haemorrhage [Unknown]

NARRATIVE: CASE EVENT DATE: 2019
